FAERS Safety Report 8372913-X (Version None)
Quarter: 2012Q2

REPORT INFORMATION
  Report Type: 
  Country: None (occurrence: None)
  Receive Date: 20120521
  Receipt Date: 20120508
  Transmission Date: 20120825
  Serious: Yes (Hospitalization, Other)
  Sender: FDA-Public Use
  Company Number: JP-SHIRE-ALL1-2011-02925

PATIENT
  Age: 69 Year
  Sex: Male

DRUGS (8)
  1. ALLOPURINOL [Concomitant]
     Indication: HYPERURICAEMIA
     Dosage: 100 MG, UNKNOWN
     Route: 048
  2. LENDORMIN [Concomitant]
     Indication: INSOMNIA
     Dosage: 0.25 MG, UNKNOWN
     Route: 048
  3. FOSRENOL [Suspect]
     Indication: HYPERPHOSPHATAEMIA
     Dosage: 750MG, UNKNOWN
     Route: 048
     Dates: start: 20110501, end: 20110817
  4. PLETAL [Concomitant]
     Indication: ANGINA PECTORIS
     Dosage: 200 MG, UNKNOWN
     Route: 048
  5. GASTER                             /00706001/ [Concomitant]
     Indication: GASTRIC ULCER
     Dosage: 10 MG, UNKNOWN
     Route: 048
  6. BUFFERIN [Concomitant]
     Indication: ANGINA PECTORIS
     Dosage: 81 MG, UNKNOWN
     Route: 048
  7. REMITCH [Concomitant]
     Indication: PRURITUS
     Dosage: 5.0 ?G, UNKNOWN
     Route: 048
  8. CINACALCET HYDROCHLORIDE [Concomitant]
     Indication: HYPERPARATHYROIDISM SECONDARY
     Dosage: 25 MG, UNKNOWN
     Route: 048

REACTIONS (2)
  - FOREIGN BODY ASPIRATION [None]
  - PNEUMONIA [None]
